FAERS Safety Report 4379498-3 (Version None)
Quarter: 2004Q2

REPORT INFORMATION
  Report Type: 
  Country: None (occurrence: None)
  Receive Date: 20040615
  Receipt Date: 20040607
  Transmission Date: 20050107
  Serious: Yes (Hospitalization)
  Sender: FDA-Public Use
  Company Number: 2004UW11791

PATIENT
  Sex: Female

DRUGS (2)
  1. CRESTOR [Suspect]
     Dosage: 10 MG PO
     Route: 048
  2. WARFARIN SODIUM [Suspect]

REACTIONS (2)
  - DRUG INTERACTION [None]
  - GASTROINTESTINAL HAEMORRHAGE [None]
